FAERS Safety Report 4800029-5 (Version None)
Quarter: 2005Q4

REPORT INFORMATION
  Report Type: 
  Country: None (occurrence: None)
  Receive Date: 20051017
  Receipt Date: 20051006
  Transmission Date: 20060501
  Serious: Yes (Hospitalization, Other)
  Sender: FDA-Public Use
  Company Number: US-JNJFOC-20051001389

PATIENT
  Sex: Female

DRUGS (24)
  1. INFLIXIMAB [Suspect]
     Indication: RHEUMATOID ARTHRITIS
     Route: 042
  2. ALBUTEROL [Concomitant]
  3. ATROVENT [Concomitant]
  4. ASPIRIN [Concomitant]
  5. METHOTREXATE [Concomitant]
  6. IBUPROFEN [Concomitant]
  7. ROBAXIN [Concomitant]
  8. FENTANYL [Concomitant]
  9. CALCIUM GLUCONATE [Concomitant]
  10. LASIX [Concomitant]
  11. MICRO-K [Concomitant]
  12. FOSAMAX [Concomitant]
  13. FOSAMAX [Concomitant]
  14. FOLIC ACID [Concomitant]
  15. ALEVE [Concomitant]
  16. MULTI-VITAMINS [Concomitant]
  17. MULTI-VITAMINS [Concomitant]
  18. MULTI-VITAMINS [Concomitant]
  19. MULTI-VITAMINS [Concomitant]
  20. MULTI-VITAMINS [Concomitant]
  21. MULTI-VITAMINS [Concomitant]
  22. MULTI-VITAMINS [Concomitant]
  23. MULTI-VITAMINS [Concomitant]
     Dosage: DAILY
  24. VITAMIN B-12 [Concomitant]

REACTIONS (8)
  - CARDIAC FAILURE CONGESTIVE [None]
  - CHRONIC OBSTRUCTIVE PULMONARY DISEASE [None]
  - COMPRESSION FRACTURE [None]
  - FRACTURED SACRUM [None]
  - HYPOXIA [None]
  - LUNG DISORDER [None]
  - MITRAL VALVE INCOMPETENCE [None]
  - MYOCARDIAL ISCHAEMIA [None]
